FAERS Safety Report 25312862 (Version 4)
Quarter: 2025Q4

REPORT INFORMATION
  Report Type: Report from Study
  Country: US (occurrence: US)
  Receive Date: 20250514
  Receipt Date: 20251211
  Transmission Date: 20260117
  Serious: Yes (Other)
  Sender: TRAVERE THERAPEUTICS
  Company Number: US-TRAVERE-2025TVT00628

PATIENT
  Age: 27 Year
  Sex: Male
  Weight: 117 kg

DRUGS (12)
  1. FILSPARI [Suspect]
     Active Substance: SPARSENTAN
     Indication: IgA nephropathy
     Route: 048
     Dates: start: 20250413, end: 20250503
  2. FILSPARI [Suspect]
     Active Substance: SPARSENTAN
     Route: 048
     Dates: start: 20250504
  3. OZEMPIC [Concomitant]
     Active Substance: SEMAGLUTIDE
  4. JARDIANCE [Concomitant]
     Active Substance: EMPAGLIFLOZIN
  5. PRAVASTATIN [Concomitant]
     Active Substance: PRAVASTATIN
  6. TAMSULOSIN [Concomitant]
     Active Substance: TAMSULOSIN
  7. CICLOPIROX [Concomitant]
     Active Substance: CICLOPIROX
  8. FEBUXOSTAT [Concomitant]
     Active Substance: FEBUXOSTAT
  9. PREDNISONE [Concomitant]
     Active Substance: PREDNISONE
  10. SODIUM BICARBONATE [Concomitant]
     Active Substance: SODIUM BICARBONATE
  11. VITAMIN D [Concomitant]
     Active Substance: VITAMIN D NOS
  12. INSULIN NOS [Concomitant]
     Active Substance: INSULIN NOS

REACTIONS (9)
  - Glomerular filtration rate decreased [Unknown]
  - Blood creatinine abnormal [Unknown]
  - Blood urea abnormal [Unknown]
  - Carbon dioxide abnormal [Unknown]
  - Blood albumin abnormal [Unknown]
  - Blood glucose abnormal [Unknown]
  - Hypertension [Recovering/Resolving]
  - Tachycardia [None]
  - Gout [Unknown]

NARRATIVE: CASE EVENT DATE: 20250506
